FAERS Safety Report 9224615 (Version 1)
Quarter: 2013Q2

REPORT INFORMATION
  Report Type: Spontaneous
  Country: CA (occurrence: CA)
  Receive Date: 20130411
  Receipt Date: 20130411
  Transmission Date: 20140414
  Serious: Yes (Other)
  Sender: FDA-Public Use
  Company Number: CA-ABBOTT-13X-028-1071877-00

PATIENT
  Age: 10 Year
  Sex: Male

DRUGS (4)
  1. VALPROIC ACID [Suspect]
     Indication: PARTIAL SEIZURES
  2. PHENOBARBITAL [Suspect]
     Indication: PARTIAL SEIZURES
  3. PENTOBARBITAL [Suspect]
     Indication: PARTIAL SEIZURES
  4. LEVETIRACETAM [Suspect]
     Indication: PARTIAL SEIZURES

REACTIONS (3)
  - Rash maculo-papular [Unknown]
  - Eosinophilia [Unknown]
  - Convulsion [Unknown]
